FAERS Safety Report 13104661 (Version 5)
Quarter: 2017Q4

REPORT INFORMATION
  Report Type: Report from Study
  Country: SI (occurrence: SI)
  Receive Date: 20170111
  Receipt Date: 20171229
  Transmission Date: 20180320
  Serious: Yes (Other)
  Sender: FDA-Public Use
  Company Number: SI-PFIZER INC-2016579030

PATIENT
  Age: 55 Year
  Sex: Female

DRUGS (3)
  1. PALBOCICLIB [Suspect]
     Active Substance: PALBOCICLIB
     Indication: BREAST CANCER METASTATIC
     Dosage: 125 MG, CYCLIC (DAILY 3 WEEKS, ONE WEEK PAUSE)
     Route: 048
     Dates: start: 20161128, end: 201706
  2. NAPROSYN [Concomitant]
     Active Substance: NAPROXEN
     Indication: BONE PAIN
     Dosage: UNK
  3. FASLODEX [Concomitant]
     Active Substance: FULVESTRANT
     Indication: BREAST CANCER METASTATIC
     Dosage: 0.5 G, MONTHLY
     Route: 030
     Dates: start: 20161020

REACTIONS (2)
  - Neutropenia [Recovered/Resolved]
  - Electrocardiogram QT prolonged [Recovering/Resolving]

NARRATIVE: CASE EVENT DATE: 20161129
